FAERS Safety Report 19437145 (Version 3)
Quarter: 2021Q3

REPORT INFORMATION
  Report Type: Spontaneous
  Country: UA (occurrence: UA)
  Receive Date: 20210618
  Receipt Date: 20210722
  Transmission Date: 20211014
  Serious: Yes (Life-Threatening)
  Sender: FDA-Public Use
  Company Number: UA-CELGENEUS-UKR-20210301588

PATIENT
  Age: 73 Year
  Sex: Female
  Weight: 94 kg

DRUGS (11)
  1. ABRAXANE [Suspect]
     Active Substance: PACLITAXEL
     Dosage: 182 MILLIGRAM
     Route: 041
     Dates: start: 20210224, end: 20210224
  2. CARBOPLATIN. [Suspect]
     Active Substance: CARBOPLATIN
     Indication: LUNG NEOPLASM MALIGNANT
     Dosage: 800 MILLIGRAM
     Route: 041
     Dates: start: 20210203, end: 20210203
  3. SERPLULIMAB. [Suspect]
     Active Substance: SERPLULIMAB
     Indication: LUNG NEOPLASM MALIGNANT
     Dosage: 423 MILLIGRAM
     Route: 041
     Dates: start: 20210203, end: 20210203
  4. ABRAXANE [Suspect]
     Active Substance: PACLITAXEL
     Dosage: 182 MILLIGRAM
     Route: 041
     Dates: start: 20210324, end: 20210324
  5. ABRAXANE [Suspect]
     Active Substance: PACLITAXEL
     Dosage: 182 MILLIGRAM
     Route: 041
     Dates: start: 20210317, end: 20210317
  6. ABRAXANE [Suspect]
     Active Substance: PACLITAXEL
     Dosage: 200 MILLIGRAM
     Route: 041
     Dates: start: 20210211, end: 20210211
  7. SERPLULIMAB. [Suspect]
     Active Substance: SERPLULIMAB
     Dosage: 423 MILLIGRAM
     Route: 041
     Dates: start: 20210224, end: 20210224
  8. ABRAXANE [Suspect]
     Active Substance: PACLITAXEL
     Indication: LUNG NEOPLASM MALIGNANT
     Dosage: 200 MILLIGRAM
     Route: 041
     Dates: start: 20210203, end: 20210203
  9. CARBOPLATIN. [Suspect]
     Active Substance: CARBOPLATIN
     Dosage: 600 MILLIGRAM
     Route: 041
     Dates: start: 20210224, end: 20210224
  10. ABRAXANE [Suspect]
     Active Substance: PACLITAXEL
     Dosage: 182 MILLIGRAM
     Route: 041
     Dates: start: 20210303, end: 20210303
  11. CARBOPLATIN. [Suspect]
     Active Substance: CARBOPLATIN
     Dosage: 526 MILLIGRAM
     Route: 041
     Dates: start: 20210317, end: 20210317

REACTIONS (1)
  - Platelet count decreased [Not Recovered/Not Resolved]

NARRATIVE: CASE EVENT DATE: 20210216
